FAERS Safety Report 5680321-5 (Version None)
Quarter: 2008Q1

REPORT INFORMATION
  Report Type: 
  Country: None (occurrence: None)
  Receive Date: 20080326
  Receipt Date: 20080317
  Transmission Date: 20080703
  Serious: Yes (Life-Threatening, Hospitalization, Other)
  Sender: FDA-Public Use
  Company Number: ES-BAYER-200815129GPV

PATIENT
  Age: 18 Year
  Sex: Female

DRUGS (1)
  1. YASMIN DIARIO/ DROSPIRENONE+ ETHYNILESTRADIOL [Suspect]
     Indication: DRUG USE FOR UNKNOWN INDICATION
     Route: 048
     Dates: start: 20071001, end: 20080101

REACTIONS (5)
  - BACK PAIN [None]
  - DEEP VEIN THROMBOSIS [None]
  - OEDEMA PERIPHERAL [None]
  - PELVIC VENOUS THROMBOSIS [None]
  - VENA CAVA THROMBOSIS [None]
